FAERS Safety Report 5645910-2 (Version None)
Quarter: 2008Q1

REPORT INFORMATION
  Report Type: 
  Country: None (occurrence: None)
  Receive Date: 20080229
  Receipt Date: 20080218
  Transmission Date: 20080703
  Serious: Yes (Hospitalization)
  Sender: FDA-Public Use
  Company Number: SE-PFIZER INC-2008015380

PATIENT
  Age: 35 Year
  Sex: Male

DRUGS (2)
  1. LYRICA [Suspect]
     Indication: GENERALISED ANXIETY DISORDER
     Route: 048
  2. LYRICA [Suspect]
     Indication: DEPRESSION

REACTIONS (4)
  - ARTHRALGIA [None]
  - DISEASE PROGRESSION [None]
  - OEDEMA [None]
  - WEIGHT INCREASED [None]
